FAERS Safety Report 9217132 (Version 1)
Quarter: 2013Q2

REPORT INFORMATION
  Report Type: Spontaneous
  Country: BE (occurrence: BE)
  Receive Date: 20130408
  Receipt Date: 20130408
  Transmission Date: 20140414
  Serious: Yes (Death, Hospitalization)
  Sender: FDA-Public Use
  Company Number: BE-JNJFOC-20130401406

PATIENT
  Age: 93 Year
  Sex: Female

DRUGS (8)
  1. XARELTO [Suspect]
     Indication: CEREBROVASCULAR ACCIDENT PROPHYLAXIS
     Route: 048
     Dates: start: 201210
  2. XARELTO [Suspect]
     Indication: ATRIAL FIBRILLATION
     Route: 048
     Dates: start: 201210
  3. GLUCOPHAGE [Concomitant]
     Route: 065
  4. BURINEX [Concomitant]
     Route: 065
  5. CORUNO [Concomitant]
     Route: 065
  6. EMCONCOR [Concomitant]
     Route: 065
  7. UNI DIAMICRON [Concomitant]
     Route: 065
  8. OMEPRAZOLE [Concomitant]
     Route: 065

REACTIONS (2)
  - Renal failure [Fatal]
  - Epistaxis [Unknown]
